FAERS Safety Report 20627704 (Version 1)
Quarter: 2022Q1

REPORT INFORMATION
  Report Type: Spontaneous
  Country: US (occurrence: US)
  Receive Date: 20220323
  Receipt Date: 20220323
  Transmission Date: 20220424
  Serious: No
  Sender: FDA-Public Use
  Company Number: US-PFIZER INC-2021705942

PATIENT
  Age: 92 Year
  Sex: Male

DRUGS (2)
  1. EUCRISA [Suspect]
     Active Substance: CRISABOROLE
     Indication: Eczema
     Dosage: USE BID (TWICE A DAY) TO ITCHY AREAS
  2. EUCRISA [Suspect]
     Active Substance: CRISABOROLE
     Dosage: QD (ONCE A DAY) TO CHEST AND BACK

REACTIONS (2)
  - Pruritus [Unknown]
  - Off label use [Unknown]
